FAERS Safety Report 15259289 (Version 1)
Quarter: 2018Q3

REPORT INFORMATION
  Report Type: Spontaneous
  Country: US (occurrence: US)
  Receive Date: 20180719
  Receipt Date: 20180719
  Transmission Date: 20181010
  Serious: Yes (Other)
  Sender: FDA-Public Use
  Company Number: None

PATIENT
  Age: 24 Year
  Sex: Male
  Weight: 141.75 kg

DRUGS (2)
  1. LOPERAMIDE HYDROCHLORIDE. [Suspect]
     Active Substance: LOPERAMIDE HYDROCHLORIDE
     Indication: DIARRHOEA
     Dosage: ?          QUANTITY:48 TABLET(S);?
     Route: 048
     Dates: start: 20180718, end: 20180719
  2. LOPERAMIDE HYDROCHLORIDE. [Suspect]
     Active Substance: LOPERAMIDE HYDROCHLORIDE
     Indication: ABDOMINAL DISCOMFORT
     Dosage: ?          QUANTITY:48 TABLET(S);?
     Route: 048
     Dates: start: 20180718, end: 20180719

REACTIONS (3)
  - Palpitations [None]
  - Incorrect dose administered [None]
  - Dizziness [None]

NARRATIVE: CASE EVENT DATE: 20180719
